FAERS Safety Report 6738412-3 (Version None)
Quarter: 2010Q2

REPORT INFORMATION
  Report Type: 
  Country: None (occurrence: None)
  Receive Date: 20100520
  Receipt Date: 20100510
  Transmission Date: 20101027
  Serious: Yes (Hospitalization)
  Sender: FDA-Public Use
  Company Number: 8027955

PATIENT
  Sex: Male
  Weight: 64 kg

DRUGS (8)
  1. CERTOLIZUMAB PEGOL (CERTOLIZUMAB PEGOL) [Suspect]
     Indication: CROHN'S DISEASE
     Dosage: (400 MG 1X/2 WEEKS, CDP870-059 SUBCUTANEOUS), (400 MG 1X/MONTH SUBCUTANEOUS)
     Route: 058
     Dates: start: 20070418
  2. CERTOLIZUMAB PEGOL (CERTOLIZUMAB PEGOL) [Suspect]
     Indication: CROHN'S DISEASE
     Dosage: (400 MG 1X/2 WEEKS, CDP870-059 SUBCUTANEOUS), (400 MG 1X/MONTH SUBCUTANEOUS)
     Route: 058
     Dates: start: 20070703
  3. IMURAN [Concomitant]
  4. NEXIUM [Concomitant]
  5. METOCLOPRAMIDE [Concomitant]
  6. FENTANYL [Concomitant]
  7. MORPHINE [Concomitant]
  8. ZOPICLONE [Concomitant]

REACTIONS (3)
  - CELLULITIS [None]
  - PNEUMONIA [None]
  - SEPSIS [None]
